FAERS Safety Report 5416529-3 (Version None)
Quarter: 2007Q3

REPORT INFORMATION
  Report Type: 
  Country: None (occurrence: None)
  Receive Date: 20070814
  Receipt Date: 20070706
  Transmission Date: 20080115
  Serious: Yes (Death)
  Sender: FDA-Public Use
  Company Number: MTRX20070001

PATIENT
  Age: 21 Year
  Sex: Female
  Weight: 55 kg

DRUGS (3)
  1. METHOTREXATE [Suspect]
     Indication: CHORIOCARCINOMA
     Dosage: 1 MG/KG (55 MG), ONCE, IM
     Route: 030
     Dates: start: 20070101, end: 20070101
  2. PROPYLTHIOURACIL [Concomitant]
  3. INDERAL [Concomitant]

REACTIONS (9)
  - ANAEMIA [None]
  - DRUG TOXICITY [None]
  - LUNG DISORDER [None]
  - LUNG INFILTRATION [None]
  - PULMONARY HAEMORRHAGE [None]
  - RESPIRATORY ACIDOSIS [None]
  - RESPIRATORY FAILURE [None]
  - TACHYCARDIA [None]
  - TUMOUR LYSIS SYNDROME [None]
